FAERS Safety Report 8558120-6 (Version None)
Quarter: 2012Q3

REPORT INFORMATION
  Report Type: 
  Country: None (occurrence: None)
  Receive Date: 20120801
  Receipt Date: 20120724
  Transmission Date: 20120928
  Serious: Yes (Other)
  Sender: FDA-Public Use
  Company Number: US-BAYER-2012-076696

PATIENT
  Age: 84 Year
  Sex: Male
  Weight: 94.35 kg

DRUGS (10)
  1. XARELTO [Interacting]
     Indication: CEREBROVASCULAR ACCIDENT PROPHYLAXIS
     Dosage: 15 MG, QD
     Route: 048
     Dates: start: 20120619, end: 20120722
  2. XARELTO [Interacting]
     Indication: ATRIAL FIBRILLATION
  3. DITROPAN [Concomitant]
  4. FLOMAX [Concomitant]
  5. DIURETICS [Suspect]
     Indication: FLUID RETENTION
     Dates: start: 20120714
  6. ASPIRIN [Suspect]
     Indication: CARDIAC DISORDER
     Dosage: 81 MG, QD
     Route: 048
  7. DIURETICS [Suspect]
     Indication: CARDIAC FAILURE
     Dates: start: 20120714
  8. PROTONIX [Concomitant]
     Indication: DIARRHOEA
     Dosage: 40 MG, QD
     Route: 048
     Dates: start: 20120101
  9. BYSTOLIC [Concomitant]
     Indication: HYPERTENSION
     Dates: start: 20060101
  10. DIURETICS [Suspect]
     Indication: PULMONARY OEDEMA
     Dates: start: 20120714

REACTIONS (5)
  - BLOOD URINE PRESENT [None]
  - ABNORMAL LOSS OF WEIGHT [None]
  - INAPPROPRIATE SCHEDULE OF DRUG ADMINISTRATION [None]
  - MOUTH HAEMORRHAGE [None]
  - OEDEMA PERIPHERAL [None]
